FAERS Safety Report 4377210-5 (Version None)
Quarter: 2004Q2

REPORT INFORMATION
  Report Type: 
  Country: None (occurrence: None)
  Receive Date: 20040614
  Receipt Date: 20040614
  Transmission Date: 20050107
  Serious: No
  Sender: FDA-Public Use
  Company Number: None

PATIENT
  Age: 79 Year
  Sex: Male
  Weight: 73.4827 kg

DRUGS (1)
  1. BETAMETHASONE [Suspect]
     Indication: ARTHRITIS
     Dosage: 1 CC X 1 INTRA-ARTICU
     Route: 014
     Dates: start: 20040426, end: 20040426

REACTIONS (4)
  - POST PROCEDURAL COMPLICATION [None]
  - POST PROCEDURAL PAIN [None]
  - SERRATIA INFECTION [None]
  - SYNOVITIS [None]
